FAERS Safety Report 7434461-0 (Version None)
Quarter: 2011Q2

REPORT INFORMATION
  Report Type: 
  Country: None (occurrence: None)
  Receive Date: 20110420
  Receipt Date: 20110420
  Transmission Date: 20111010
  Serious: Yes (Other)
  Sender: FDA-Public Use
  Company Number: None

PATIENT
  Age: 45 Year
  Sex: Female
  Weight: 56.6996 kg

DRUGS (1)
  1. OXCARBAZEPINE [Suspect]
     Indication: BIPOLAR DISORDER
     Dosage: 900MG DAILY PO
     Route: 048
     Dates: start: 20110117, end: 20110121

REACTIONS (5)
  - NAUSEA [None]
  - VISUAL ACUITY REDUCED [None]
  - DIZZINESS [None]
  - FEELING ABNORMAL [None]
  - VISUAL FIELD DEFECT [None]
